FAERS Safety Report 5154345-0 (Version None)
Quarter: 2006Q4

REPORT INFORMATION
  Report Type: 
  Country: None (occurrence: None)
  Receive Date: 20061114
  Receipt Date: 20061031
  Transmission Date: 20070319
  Serious: Yes (Other)
  Sender: FDA-Public Use
  Company Number: 2006137707

PATIENT
  Sex: Male

DRUGS (2)
  1. XALATAN [Suspect]
     Indication: GLAUCOMA
     Dosage: 1 DROP (1 IN 1 D), OPHTHALMIC
     Route: 047
     Dates: start: 20050401, end: 20050601
  2. COSOPT [Concomitant]

REACTIONS (1)
  - VISUAL ACUITY REDUCED [None]
